FAERS Safety Report 23896798 (Version 1)
Quarter: 2024Q2

REPORT INFORMATION
  Report Type: Spontaneous
  Country: JP (occurrence: JP)
  Receive Date: 20240524
  Receipt Date: 20240524
  Transmission Date: 20240716
  Serious: Yes (Other)
  Sender: FDA-Public Use
  Company Number: JP-PFIZER INC-PV202400067649

PATIENT
  Age: 68 Year
  Sex: Male

DRUGS (4)
  1. VORICONAZOLE [Suspect]
     Active Substance: VORICONAZOLE
     Dosage: UNK
     Route: 048
  2. TACROLIMUS [Concomitant]
     Active Substance: TACROLIMUS
     Indication: Immunosuppressant drug therapy
  3. MYCOPHENOLATE MOFETIL [Concomitant]
     Active Substance: MYCOPHENOLATE MOFETIL
     Indication: Immunosuppressant drug therapy
  4. PREDNISOLONE [Concomitant]
     Active Substance: PREDNISOLONE
     Indication: Immunosuppressant drug therapy

REACTIONS (2)
  - Squamous cell carcinoma [Not Recovered/Not Resolved]
  - Photosensitivity reaction [Unknown]
